FAERS Safety Report 10825145 (Version 2)
Quarter: 2016Q1

REPORT INFORMATION
  Report Type: Report from Study
  Country: US (occurrence: US)
  Receive Date: 20150219
  Receipt Date: 20160125
  Transmission Date: 20160525
  Serious: No
  Sender: FDA-Public Use
  Company Number: US-ABBVIE-14K-163-1318903-00

PATIENT
  Age: 52 Year
  Sex: Male

DRUGS (2)
  1. HUMIRA [Suspect]
     Active Substance: ADALIMUMAB
     Indication: COLITIS ULCERATIVE
     Route: 065
     Dates: start: 20140324
  2. HUMIRA [Suspect]
     Active Substance: ADALIMUMAB
     Indication: PSORIASIS

REACTIONS (4)
  - Drug effect incomplete [Not Recovered/Not Resolved]
  - Injection site pain [Unknown]
  - Nodule [Unknown]
  - Antiphospholipid syndrome [Not Recovered/Not Resolved]

NARRATIVE: CASE EVENT DATE: 2014
